FAERS Safety Report 15233821 (Version 1)
Quarter: 2018Q3

REPORT INFORMATION
  Report Type: Spontaneous
  Country: IT (occurrence: IT)
  Receive Date: 20180802
  Receipt Date: 20180802
  Transmission Date: 20181010
  Serious: Yes (Other)
  Sender: FDA-Public Use
  Company Number: PHHY2018IT059938

PATIENT
  Age: 53 Year
  Sex: Male

DRUGS (1)
  1. IBUPROFEN. [Suspect]
     Active Substance: IBUPROFEN
     Indication: EPICONDYLITIS
     Dosage: 600 MG, UNK
     Route: 048

REACTIONS (6)
  - Malaise [Recovering/Resolving]
  - Agitation [Recovering/Resolving]
  - Loss of consciousness [Recovering/Resolving]
  - Intentional product misuse [Recovering/Resolving]
  - Vision blurred [Recovering/Resolving]
  - Paraesthesia [Recovering/Resolving]

NARRATIVE: CASE EVENT DATE: 20180520
